FAERS Safety Report 16805271 (Version 1)
Quarter: 2019Q3

REPORT INFORMATION
  Report Type: Spontaneous
  Country: CA (occurrence: CA)
  Receive Date: 20190913
  Receipt Date: 20190913
  Transmission Date: 20191005
  Serious: Yes (Other)
  Sender: FDA-Public Use
  Company Number: CA-PFIZER INC-2019394067

PATIENT
  Age: 33 Year
  Sex: Female
  Weight: 77 kg

DRUGS (5)
  1. LOSARTAN/HCTZ [Concomitant]
     Active Substance: HYDROCHLOROTHIAZIDE\LOSARTAN
     Dosage: UNK
  2. DEPO-MEDROL [Suspect]
     Active Substance: METHYLPREDNISOLONE ACETATE
     Indication: BURSITIS
     Dosage: 1 DF, UNK (40 MG/ML)
     Route: 014
  3. FOLIC ACID. [Concomitant]
     Active Substance: FOLIC ACID
     Dosage: UNK
  4. ORTHO TABLETS [Concomitant]
     Dosage: UNK
  5. PANTOPRAZOLE [Concomitant]
     Active Substance: PANTOPRAZOLE
     Dosage: UNK

REACTIONS (5)
  - Hot flush [Recovered/Resolved]
  - Blood pressure increased [Recovered/Resolved]
  - Extra dose administered [Unknown]
  - Ear discomfort [Recovered/Resolved]
  - Erythema [Recovered/Resolved]
